FAERS Safety Report 8018884-7 (Version None)
Quarter: 2011Q4

REPORT INFORMATION
  Report Type: 
  Country: None (occurrence: None)
  Receive Date: 20111227
  Receipt Date: 20111220
  Transmission Date: 20120403
  Serious: Yes (Death)
  Sender: FDA-Public Use
  Company Number: ADR-2011-11745

PATIENT
  Age: 61 Year
  Sex: Female

DRUGS (7)
  1. BACLOFEN [Suspect]
     Indication: CANCER PAIN
     Dosage: 239.73 MCG/DAY, INTRATH
     Route: 037
  2. BACLOFEN [Suspect]
     Indication: VISCERAL PAIN
     Dosage: 239.73 MCG/DAY, INTRATH
     Route: 037
  3. BACLOFEN [Suspect]
     Indication: ABDOMINAL PAIN
     Dosage: 239.73 MCG/DAY, INTRATH
     Route: 037
  4. DILAUDID [Concomitant]
  5. DROPERIDOL [Concomitant]
  6. CLONIDINE [Concomitant]
  7. BUPIVACAINE HCL [Concomitant]

REACTIONS (1)
  - DEATH [None]
